FAERS Safety Report 19729218 (Version 1)
Quarter: 2021Q3

REPORT INFORMATION
  Report Type: Spontaneous
  Country: US (occurrence: US)
  Receive Date: 20210821
  Receipt Date: 20210821
  Transmission Date: 20211014
  Serious: No
  Sender: FDA-Public Use
  Company Number: US-009507513-2108USA002720

PATIENT
  Age: 69 Year
  Sex: Female

DRUGS (1)
  1. KEYTRUDA [Suspect]
     Active Substance: PEMBROLIZUMAB
     Indication: PERIVASCULAR EPITHELIOID CELL TUMOUR
     Dosage: 2 MILLIGRAM/KILOGRAM, Q3W
     Route: 042
     Dates: start: 201510

REACTIONS (1)
  - Off label use [Unknown]
